FAERS Safety Report 11394055 (Version 1)
Quarter: 2015Q3

REPORT INFORMATION
  Report Type: Spontaneous
  Country: US (occurrence: US)
  Receive Date: 20150819
  Receipt Date: 20150819
  Transmission Date: 20151125
  Serious: Yes (Other)
  Sender: FDA-Public Use
  Company Number: US-AMGEN-USASP2015083714

PATIENT
  Age: 46 Year
  Sex: Female
  Weight: 73 kg

DRUGS (3)
  1. XELJANZ [Suspect]
     Active Substance: TOFACITINIB CITRATE
     Indication: RHEUMATOID ARTHRITIS
     Dosage: 5 MG, BID
     Route: 048
     Dates: start: 20150709, end: 20150810
  2. METHOTREXATE [Suspect]
     Active Substance: METHOTREXATE
     Indication: PRODUCT USED FOR UNKNOWN INDICATION
     Dosage: UNK
     Route: 065
  3. ENBREL [Suspect]
     Active Substance: ETANERCEPT
     Indication: RHEUMATOID ARTHRITIS
     Dosage: UNK UNK, SHOT ONE TIME PER WEEK
     Route: 065

REACTIONS (11)
  - Drug ineffective [Unknown]
  - Foot operation [Recovered/Resolved]
  - Oral mucosal blistering [Unknown]
  - Headache [Recovering/Resolving]
  - Eye pain [Recovering/Resolving]
  - Feeling abnormal [Recovered/Resolved]
  - Hand deformity [Not Recovered/Not Resolved]
  - Nausea [Recovering/Resolving]
  - Knee arthroplasty [Recovered/Resolved]
  - Hypersomnia [Unknown]
  - Osteoarthritis [Not Recovered/Not Resolved]

NARRATIVE: CASE EVENT DATE: 200211
